FAERS Safety Report 21246358 (Version 3)
Quarter: 2022Q4

REPORT INFORMATION
  Report Type: Report from Study
  Country: US (occurrence: US)
  Receive Date: 20220824
  Receipt Date: 20221024
  Transmission Date: 20230113
  Serious: Yes (Death, Hospitalization)
  Sender: FDA-Public Use
  Company Number: US-NOVARTISPH-NVSC2022US186964

PATIENT
  Sex: Female

DRUGS (2)
  1. SCEMBLIX [Suspect]
     Active Substance: ASCIMINIB HYDROCHLORIDE
     Indication: Product used for unknown indication
     Dosage: UNK (5 PILLS IN AM AND PM)
     Route: 048
  2. SCEMBLIX [Suspect]
     Active Substance: ASCIMINIB HYDROCHLORIDE
     Dosage: UNK (4 PILLS IN AM AND PM)
     Route: 048

REACTIONS (5)
  - Death [Fatal]
  - Fluid retention [Unknown]
  - Epistaxis [Unknown]
  - Chest pain [Unknown]
  - Nausea [Unknown]
